FAERS Safety Report 19792850 (Version 1)
Quarter: 2021Q3

REPORT INFORMATION
  Report Type: Spontaneous
  Country: JP (occurrence: JP)
  Receive Date: 20210906
  Receipt Date: 20210906
  Transmission Date: 20211014
  Serious: Yes (Other)
  Sender: FDA-Public Use
  Company Number: JP-PFIZER INC-202101091856

PATIENT

DRUGS (1)
  1. VIBRAMYCIN [Suspect]
     Active Substance: DOXYCYCLINE
     Dosage: UNK
     Route: 048

REACTIONS (4)
  - Renal impairment [Unknown]
  - Glomerular filtration rate decreased [Unknown]
  - Protein urine present [Unknown]
  - Dizziness [Unknown]
